FAERS Safety Report 17295907 (Version 1)
Quarter: 2020Q1

REPORT INFORMATION
  Report Type: Spontaneous
  Country: US (occurrence: US)
  Receive Date: 20200121
  Receipt Date: 20200121
  Transmission Date: 20200409
  Serious: No
  Sender: FDA-Public Use
  Company Number: US-LNK INTERNATIONAL, INC.-2079251

PATIENT
  Sex: Female

DRUGS (1)
  1. ACETAMINOPHEN 250MG, ASPIRIN 250MG, DIPHENHYDRAMINE CITRATE 38MG FILM [Suspect]
     Active Substance: ACETAMINOPHEN\ASPIRIN\DIPHENHYDRAMINE CITRATE
     Indication: PAIN

REACTIONS (3)
  - Erythema [None]
  - Rash [None]
  - Dyspnoea [None]
